FAERS Safety Report 14591086 (Version 1)
Quarter: 2018Q1

REPORT INFORMATION
  Report Type: Spontaneous
  Country: US (occurrence: US)
  Receive Date: 20180301
  Receipt Date: 20180301
  Transmission Date: 20180509
  Serious: Yes (Hospitalization)
  Sender: FDA-Public Use
  Company Number: None

PATIENT
  Age: 68 Year
  Sex: Male
  Weight: 79.02 kg

DRUGS (1)
  1. IODINE. [Suspect]
     Active Substance: IODINE
     Indication: COMPUTERISED TOMOGRAM
     Route: 042
     Dates: start: 20180224, end: 20180224

REACTIONS (1)
  - Anaphylactic reaction [None]

NARRATIVE: CASE EVENT DATE: 20180225
